FAERS Safety Report 24618165 (Version 2)
Quarter: 2024Q4

REPORT INFORMATION
  Report Type: Spontaneous
  Country: GB (occurrence: GB)
  Receive Date: 20241114
  Receipt Date: 20241121
  Transmission Date: 20250115
  Serious: Yes (Other)
  Sender: JUBILANT
  Company Number: None

PATIENT
  Sex: Female

DRUGS (2)
  1. SOLIFENACIN [Suspect]
     Active Substance: SOLIFENACIN
     Indication: Hypertonic bladder
     Dosage: 5 MG
     Dates: start: 20241018
  2. LYMECYCLINE [Concomitant]
     Active Substance: LYMECYCLINE
     Indication: Acne
     Dosage: UNK, UNK
     Dates: start: 20240912

REACTIONS (4)
  - Hypotension [Not Recovered/Not Resolved]
  - Heart rate decreased [Not Recovered/Not Resolved]
  - Nausea [Not Recovered/Not Resolved]
  - Dizziness [Not Recovered/Not Resolved]

NARRATIVE: CASE EVENT DATE: 20241019
